FAERS Safety Report 6208027-4 (Version None)
Quarter: 2009Q2

REPORT INFORMATION
  Report Type: 
  Country: None (occurrence: None)
  Receive Date: 20090529
  Receipt Date: 20090219
  Transmission Date: 20091009
  Serious: Yes (Hospitalization)
  Sender: FDA-Public Use
  Company Number: US-KINGPHARMUSA00001-K200900355

PATIENT
  Age: 41 Year
  Sex: Female

DRUGS (2)
  1. FLECTOR [Suspect]
     Indication: RADICULOPATHY
     Dosage: 1 PATCH, SINGLE
     Route: 061
     Dates: start: 20080907
  2. PERCOCET [Concomitant]
     Indication: NERVOUS SYSTEM DISORDER
     Route: 048

REACTIONS (1)
  - CEREBROVASCULAR ACCIDENT [None]
